FAERS Safety Report 4511073-X (Version None)
Quarter: 2004Q4

REPORT INFORMATION
  Report Type: 
  Country: None (occurrence: None)
  Receive Date: 20041015
  Receipt Date: 20040724
  Transmission Date: 20050328
  Serious: Yes (Disabling, Other)
  Sender: FDA-Public Use
  Company Number: 2004008374

PATIENT
  Age: 79 Year
  Sex: Female
  Weight: 83.9154 kg

DRUGS (7)
  1. NEURONTIN [Suspect]
     Indication: PAIN
     Dosage: 1200 MG (TID), ORAL
     Route: 048
     Dates: start: 20031109, end: 20040116
  2. ATORVASTATIN (ATORVASTATIN) [Concomitant]
  3. ESOMEPRAZOLE (ESOMEPRAZOLE) [Concomitant]
  4. ALL OTHER THERAPEUTIC PRODUCTS (ALL OTHER THERAPEUTIC PRODUCTS) [Concomitant]
  5. VALSARTAN (VALSARTAN) [Concomitant]
  6. AMLODIPINE BESYLATE [Concomitant]
  7. CELECOXIB (CELECOXIB) [Concomitant]

REACTIONS (20)
  - ANXIETY [None]
  - ASTHENOPIA [None]
  - CORNEAL DISORDER [None]
  - DEPRESSED MOOD [None]
  - DIFFICULTY IN WALKING [None]
  - DIPLOPIA [None]
  - DISORIENTATION [None]
  - DIZZINESS [None]
  - EYE DISORDER [None]
  - EYE IRRITATION [None]
  - EYE PAIN [None]
  - FEAR OF FALLING [None]
  - HEADACHE [None]
  - IMPAIRED DRIVING ABILITY [None]
  - IMPAIRED WORK ABILITY [None]
  - IVTH NERVE PARALYSIS [None]
  - NUCLEAR MAGNETIC RESONANCE IMAGING ABNORMAL [None]
  - PAIN [None]
  - UNEVALUABLE EVENT [None]
  - VISUAL DISTURBANCE [None]
